FAERS Safety Report 8815347 (Version 1)
Quarter: 2012Q4

REPORT INFORMATION
  Report Type: 
  Country: FR (occurrence: FR)
  Receive Date: 20120928
  Receipt Date: 20120928
  Transmission Date: 20130627
  Serious: Yes (Other)
  Sender: FDA-Public Use
  Company Number: FR-BRISTOL-MYERS SQUIBB COMPANY-16980732

PATIENT
  Age: 55 Year
  Sex: Female

DRUGS (7)
  1. ONGLYZA TABS 5 MG [Suspect]
     Route: 048
     Dates: start: 20120106, end: 20120313
  2. EZETROL [Suspect]
     Route: 048
     Dates: start: 20111010, end: 20120313
  3. SIMVASTATIN [Suspect]
  4. NOVONORM [Concomitant]
  5. METFORMIN [Concomitant]
  6. GLUCOR [Concomitant]
  7. RAMIPRIL [Concomitant]

REACTIONS (1)
  - Hepatocellular injury [Recovered/Resolved]
